FAERS Safety Report 20935907 (Version 3)
Quarter: 2022Q2

REPORT INFORMATION
  Report Type: Spontaneous
  Country: US (occurrence: US)
  Receive Date: 20220609
  Receipt Date: 20220616
  Transmission Date: 20220720
  Serious: No
  Sender: FDA-Public Use
  Company Number: US-UNITED THERAPEUTICS-UNT-2022-012583

PATIENT
  Sex: Female
  Weight: 160.54 kg

DRUGS (1)
  1. TYVASO [Suspect]
     Active Substance: TREPROSTINIL
     Indication: Pulmonary arterial hypertension
     Dosage: 18 ?G, QID
     Dates: start: 202205

REACTIONS (11)
  - Headache [Unknown]
  - Sinusitis [Unknown]
  - Throat irritation [Unknown]
  - Hyperhidrosis [Unknown]
  - Diarrhoea [Unknown]
  - Flatulence [Unknown]
  - Fatigue [Unknown]
  - Nausea [Unknown]
  - Cough [Unknown]
  - Oropharyngeal pain [Unknown]
  - Dyspnoea [Unknown]

NARRATIVE: CASE EVENT DATE: 20220101
